FAERS Safety Report 9189455 (Version 1)
Quarter: 2013Q1

REPORT INFORMATION
  Report Type: Spontaneous
  Country: US (occurrence: None)
  Receive Date: 20130322
  Receipt Date: 20130322
  Transmission Date: 20140127
  Serious: Yes (Other)
  Sender: FDA-Public Use
  Company Number: None

PATIENT
  Age: 5 Month
  Sex: Female

DRUGS (1)
  1. FLUOCINOLONE [Suspect]
     Indication: DERMATITIS
     Route: 061
     Dates: start: 20130207

REACTIONS (1)
  - Chemical burn of skin [None]
